FAERS Safety Report 7362018-9 (Version None)
Quarter: 2011Q1

REPORT INFORMATION
  Report Type: 
  Country: None (occurrence: None)
  Receive Date: 20110318
  Receipt Date: 20110314
  Transmission Date: 20110831
  Serious: Yes (Life-Threatening, Hospitalization)
  Sender: FDA-Public Use
  Company Number: JP-PFIZER INC-2011053660

PATIENT
  Age: 50 Year
  Sex: Male

DRUGS (1)
  1. SULPERAZON [Suspect]
     Dosage: UNK
     Dates: start: 20110310

REACTIONS (1)
  - SHOCK [None]
